FAERS Safety Report 7121545-X (Version None)
Quarter: 2010Q4

REPORT INFORMATION
  Report Type: 
  Country: None (occurrence: None)
  Receive Date: 20101124
  Receipt Date: 20101101
  Transmission Date: 20110411
  Serious: Yes (Hospitalization)
  Sender: FDA-Public Use
  Company Number: JP-EISAI INC.-E2090-01378-SPO-JP

PATIENT
  Age: 48 Year
  Sex: Female

DRUGS (1)
  1. EXCEGRAN [Suspect]
     Dosage: UNKNOWN
     Route: 048
     Dates: start: 20101008, end: 20101020

REACTIONS (1)
  - DRUG ERUPTION [None]
